FAERS Safety Report 21354767 (Version 1)
Quarter: 2022Q3

REPORT INFORMATION
  Report Type: Spontaneous
  Country: US (occurrence: US)
  Receive Date: 20220920
  Receipt Date: 20220920
  Transmission Date: 20221027
  Serious: No
  Sender: FDA-Public Use
  Company Number: US-TEVA-2022-US-2071952

PATIENT
  Sex: Female

DRUGS (1)
  1. COPAXONE [Suspect]
     Active Substance: GLATIRAMER ACETATE
     Indication: Multiple sclerosis
     Dosage: STRENGTH: 40MG/ML
     Route: 065

REACTIONS (4)
  - Pain in extremity [Unknown]
  - Liver disorder [Unknown]
  - Abdominal pain upper [Unknown]
  - Back pain [Unknown]
